FAERS Safety Report 6030786-4 (Version None)
Quarter: 2009Q1

REPORT INFORMATION
  Report Type: 
  Country: None (occurrence: None)
  Receive Date: 20090107
  Receipt Date: 20081231
  Transmission Date: 20090719
  Serious: Yes (Other)
  Sender: FDA-Public Use
  Company Number: PHEH2008US11493

PATIENT
  Sex: Female

DRUGS (1)
  1. ZOMETA [Suspect]

REACTIONS (5)
  - ANOREXIA [None]
  - BONE DISORDER [None]
  - FATIGUE [None]
  - OSTEONECROSIS [None]
  - TOOTH EXTRACTION [None]
